FAERS Safety Report 14641527 (Version 4)
Quarter: 2018Q2

REPORT INFORMATION
  Report Type: Spontaneous
  Country: DE (occurrence: DE)
  Receive Date: 20180315
  Receipt Date: 20180417
  Transmission Date: 20180711
  Serious: Yes (Life-Threatening, Hospitalization, Other)
  Sender: FDA-Public Use
  Company Number: DE-AMGEN-DEUSP2018033489

PATIENT
  Age: 72 Year
  Sex: Female
  Weight: 89 kg

DRUGS (16)
  1. DEKRISTOL [Concomitant]
     Active Substance: CHOLECALCIFEROL
     Dosage: UNK UNK, QWK
  2. SIMVABETA [Concomitant]
     Active Substance: SIMVASTATIN
     Dosage: 20 MG, QD (IN THE MORNING)
  3. ARANESP [Suspect]
     Active Substance: DARBEPOETIN ALFA
     Dosage: 150 MUG, QWK
     Route: 058
     Dates: start: 2017
  4. ADENURIC [Concomitant]
     Active Substance: FEBUXOSTAT
     Dosage: 80 MG, EVERY SECOND DAY (IN THE MORNING)
  5. ARANESP [Suspect]
     Active Substance: DARBEPOETIN ALFA
     Dosage: 100 MUG, QWK
     Route: 065
  6. METOPROLOL. [Concomitant]
     Active Substance: METOPROLOL
     Dosage: 100 UNK, HALF TABLET IN THE MORNING AS WELL AS IN THE EVENING
  7. DECODERM TRI [Concomitant]
     Active Substance: FLUPREDNIDENE ACETATE\MICONAZOLE NITRATE
     Dosage: (0.9 MG, 17.37 MG), AS NECESSARY
  8. IBANDRONATE [Concomitant]
     Active Substance: IBANDRONATE SODIUM
  9. OSTEOTRIOL [Concomitant]
     Dosage: 0.5 MUG, Q2WK (IN THE MORNING)
  10. PANTOPRAZOLE SODIUM. [Concomitant]
     Active Substance: PANTOPRAZOLE SODIUM
     Dosage: 2 DF, BID (IN THE MORNING AS WELL AS IN THE NIGHT), IF REQUIRED
  11. THIAMAZOLE [Concomitant]
     Active Substance: METHIMAZOLE
     Dosage: 10 MG, QD (IN THE MORNING, SATURDAY AND SUNDAY PAUSE)
  12. JANUVIA [Concomitant]
     Active Substance: SITAGLIPTIN PHOSPHATE
     Dosage: 25 MG, QD (IN THE MORNING)
  13. ARANESP [Suspect]
     Active Substance: DARBEPOETIN ALFA
     Indication: NEPHROGENIC ANAEMIA
     Dosage: 40 MUG, QWK
     Route: 058
     Dates: start: 2017
  14. ASPIRIN. [Concomitant]
     Active Substance: ASPIRIN
     Dosage: 100 UNK, EVERY SECOND DAY (IN THE MORNING)
  15. FUROSEMID [Concomitant]
     Active Substance: FUROSEMIDE
     Dosage: 40 UNK, QD (IN THE MORNING)
  16. FAVISTAN [Concomitant]
     Dosage: UNK
     Dates: start: 201603

REACTIONS (7)
  - Renal failure [Unknown]
  - Escherichia infection [Unknown]
  - IgA nephropathy [Unknown]
  - Aplasia pure red cell [Not Recovered/Not Resolved]
  - Renal cyst [Unknown]
  - Hypoparathyroidism secondary [Unknown]
  - Urinary tract infection [Unknown]

NARRATIVE: CASE EVENT DATE: 201712
